FAERS Safety Report 7922954-9 (Version None)
Quarter: 2011Q4

REPORT INFORMATION
  Report Type: 
  Country: None (occurrence: None)
  Receive Date: 20111117
  Receipt Date: 20110126
  Transmission Date: 20120403
  Serious: No
  Sender: FDA-Public Use
  Company Number: US-AMGEN-USASP2011005040

PATIENT
  Age: 73 Year
  Sex: Female
  Weight: 95.238 kg

DRUGS (13)
  1. POTASSIUM CHLORIDE [Concomitant]
     Dosage: 10 MEQ, UNK
  2. METHOTREXATE [Concomitant]
     Dosage: 2.5 MG, UNK
     Route: 048
  3. GABAPENTIN [Concomitant]
     Dosage: 300 MG, UNK
     Route: 048
  4. AMBIEN [Concomitant]
     Dosage: 10 MG, UNK
     Route: 048
  5. LIPITOR [Concomitant]
     Dosage: 20 MG, UNK
     Route: 048
  6. FUROSEMIDE [Concomitant]
     Dosage: 20 MG, UNK
     Route: 048
  7. SULAR [Concomitant]
     Dosage: 10 MG, UNK
     Route: 048
  8. ACTOS [Concomitant]
     Dosage: 15 MG, UNK
     Route: 048
  9. ENBREL [Suspect]
     Indication: PRODUCT USED FOR UNKNOWN INDICATION
     Dosage: 50 MG, QWK
  10. PREDNISONE TAB [Concomitant]
     Dosage: 1 MG, UNK
     Route: 048
  11. DIOVAN [Concomitant]
     Dosage: 320 MG, UNK
     Route: 048
  12. MINOCYCLINE HCL [Concomitant]
     Dosage: 50 MG, UNK
     Route: 048
  13. NEXIUM [Concomitant]
     Dosage: 40 MG, UNK
     Route: 048

REACTIONS (2)
  - MOUTH ULCERATION [None]
  - URINARY TRACT INFECTION [None]
